FAERS Safety Report 6531602-4 (Version None)
Quarter: 2010Q1

REPORT INFORMATION
  Report Type: 
  Country: None (occurrence: None)
  Receive Date: 20100108
  Receipt Date: 20100105
  Transmission Date: 20100710
  Serious: Yes (Life-Threatening, Hospitalization)
  Sender: FDA-Public Use
  Company Number: FR-ROCHE-631384

PATIENT
  Sex: Male
  Weight: 80 kg

DRUGS (4)
  1. BEVACIZUMAB [Suspect]
     Indication: RENAL CANCER METASTATIC
     Route: 041
     Dates: start: 20081114
  2. BEVACIZUMAB [Suspect]
     Route: 041
     Dates: start: 20090410, end: 20090424
  3. TEMSIROLIMUS [Suspect]
     Indication: RENAL CANCER METASTATIC
     Route: 041
     Dates: start: 20081114
  4. TEMSIROLIMUS [Suspect]
     Route: 041
     Dates: start: 20090410, end: 20090424

REACTIONS (1)
  - PNEUMOTHORAX [None]
